FAERS Safety Report 6694178-7 (Version None)
Quarter: 2010Q2

REPORT INFORMATION
  Report Type: 
  Country: None (occurrence: None)
  Receive Date: 20100423
  Receipt Date: 20100413
  Transmission Date: 20101027
  Serious: Yes (Disabling)
  Sender: FDA-Public Use
  Company Number: NL-ROCHE-697468

PATIENT
  Age: 46 Year
  Sex: Female

DRUGS (3)
  1. ROACTEMRA [Suspect]
     Dosage: FREQUENCY REPORTED AS TWICE
     Route: 042
  2. ROACTEMRA [Suspect]
     Dosage: RECEIVED SECOND INFUSION
     Route: 042
     Dates: start: 20100408
  3. PREDNISONE [Concomitant]
     Dosage: FREQUENCY : QD
     Route: 048

REACTIONS (5)
  - COUGH [None]
  - FATIGUE [None]
  - HEADACHE [None]
  - INFLUENZA LIKE ILLNESS [None]
  - MALAISE [None]
